FAERS Safety Report 4350271-5 (Version None)
Quarter: 2004Q2

REPORT INFORMATION
  Report Type: 
  Country: None (occurrence: None)
  Receive Date: 20040427
  Receipt Date: 20030505
  Transmission Date: 20050107
  Serious: No
  Sender: FDA-Public Use
  Company Number: 000536

PATIENT
  Age: 71 Year
  Sex: Female
  Weight: 52.2 kg

DRUGS (13)
  1. ZEVALIN [Suspect]
     Indication: NON-HODGKIN'S LYMPHOMA
     Dosage: 570 MG SINGLE, RITUXAN DOSE 1, INTRAVENOUS
     Route: 042
     Dates: start: 20030311, end: 20030311
  2. ZEVALIN [Suspect]
     Dosage: SINGLE, IN-[111] ZEVALIN, INTRAVENOUS
     Route: 042
     Dates: start: 20030311, end: 20030311
  3. ZEVALIN [Suspect]
     Dosage: 570 MG, RITUXAN DOSE 2, INTRAVENOUS
     Route: 042
     Dates: start: 20030318, end: 20030318
  4. ZEVALIN [Suspect]
     Dosage: SINGLE, Y-[90] ZEVALIN, INTRAVENOUS
     Route: 042
     Dates: start: 20030318, end: 20030318
  5. XANAX [Concomitant]
  6. PREMARIN [Concomitant]
  7. ZESTRIL [Concomitant]
  8. LEVSIN (HYOSCYAMINE SULFATE) [Concomitant]
  9. CALCIUM (CALCIUM) [Concomitant]
  10. B COMPLEX (PYRIDOXINE HYDROCHLORIDE, THIAMINE HYDROCHLORIDE, RIBOFLAVI [Concomitant]
  11. BEXTRA [Concomitant]
  12. ALLOPURINOL [Concomitant]
  13. MULTIVITAMIN (VITAMINS NOS) [Concomitant]

REACTIONS (8)
  - BACK PAIN [None]
  - DEPRESSION [None]
  - DYSPNOEA [None]
  - ECCHYMOSIS [None]
  - HEADACHE [None]
  - MALAISE [None]
  - PAIN [None]
  - THROMBOCYTOPENIA [None]
